FAERS Safety Report 7476369-0 (Version None)
Quarter: 2011Q2

REPORT INFORMATION
  Report Type: 
  Country: None (occurrence: None)
  Receive Date: 20110512
  Receipt Date: 20110504
  Transmission Date: 20111010
  Serious: Yes (Disabling)
  Sender: FDA-Public Use
  Company Number: A0925793A

PATIENT
  Age: 59 Year
  Sex: Male

DRUGS (6)
  1. METFORMIN HCL [Concomitant]
  2. PROMACTA [Suspect]
     Indication: IDIOPATHIC THROMBOCYTOPENIC PURPURA
     Dosage: 25MG TWICE PER DAY
     Route: 048
  3. GLYBURIDE [Concomitant]
  4. GLUCOPHAGE [Concomitant]
  5. LISINOPRIL [Concomitant]
  6. METHADONE HCL [Concomitant]

REACTIONS (8)
  - MYALGIA [None]
  - JOINT SWELLING [None]
  - TREMOR [None]
  - CONVULSION [None]
  - STARING [None]
  - PAIN [None]
  - ARTHRALGIA [None]
  - JOINT STIFFNESS [None]
